FAERS Safety Report 7836848-0 (Version None)
Quarter: 2011Q4

REPORT INFORMATION
  Report Type: 
  Country: None (occurrence: None)
  Receive Date: 20111024
  Receipt Date: 20101206
  Transmission Date: 20120403
  Serious: No
  Sender: FDA-Public Use
  Company Number: US-ABBOTT-10P-163-0690238-00

PATIENT
  Sex: Female

DRUGS (4)
  1. GLUCOSAMINE CHONDROITIN [Concomitant]
     Indication: PRODUCT USED FOR UNKNOWN INDICATION
  2. VITAMIN D [Concomitant]
     Indication: PRODUCT USED FOR UNKNOWN INDICATION
  3. LUPRON [Suspect]
     Indication: PRODUCT USED FOR UNKNOWN INDICATION
  4. FEMARA [Concomitant]
     Indication: PRODUCT USED FOR UNKNOWN INDICATION

REACTIONS (3)
  - DRY EYE [None]
  - VULVOVAGINAL DRYNESS [None]
  - HOT FLUSH [None]
